FAERS Safety Report 5939473-1 (Version None)
Quarter: 2008Q4

REPORT INFORMATION
  Report Type: 
  Country: None (occurrence: None)
  Receive Date: 20081029
  Receipt Date: 20081016
  Transmission Date: 20090506
  Serious: Yes (Other)
  Sender: FDA-Public Use
  Company Number: 1000001459

PATIENT
  Sex: Female

DRUGS (1)
  1. ESCITALOPRAM OXALATE [Suspect]
     Dosage: 20 MG, (20 MG, 1 IN 1 D, ORAL
     Route: 048

REACTIONS (1)
  - URINARY RETENTION [None]
